FAERS Safety Report 7640937-3 (Version None)
Quarter: 2011Q3

REPORT INFORMATION
  Report Type: 
  Country: None (occurrence: None)
  Receive Date: 20110727
  Receipt Date: 20110727
  Transmission Date: 20111222
  Serious: Yes (Hospitalization)
  Sender: FDA-Public Use
  Company Number: None

PATIENT
  Sex: Female
  Weight: 74.8435 kg

DRUGS (1)
  1. ALENDRONATE SODIUM [Suspect]
     Dosage: 70MG 1 X WEEKLY ORAL
     Route: 048
     Dates: start: 20080623, end: 20110626

REACTIONS (2)
  - FALL [None]
  - MOVEMENT DISORDER [None]
